FAERS Safety Report 15897356 (Version 3)
Quarter: 2019Q1

REPORT INFORMATION
  Report Type: Spontaneous
  Country: GB (occurrence: GB)
  Receive Date: 20190131
  Receipt Date: 20190227
  Transmission Date: 20190417
  Serious: Yes (Death, Other)
  Sender: FDA-Public Use
  Company Number: GB-GILEAD-2019-0387761

PATIENT
  Sex: Female

DRUGS (3)
  1. AZACTAM [Suspect]
     Active Substance: AZTREONAM
     Indication: ENTEROBACTER INFECTION
     Route: 065
  2. ZAVICEFTA [Suspect]
     Active Substance: AVIBACTAM SODIUM\CEFTAZIDIME
     Indication: PRODUCT USED FOR UNKNOWN INDICATION
     Dosage: UNK
     Route: 065
  3. AZTREONAM LYSINE [Suspect]
     Active Substance: AZTREONAM LYSINE
     Indication: ENTEROBACTER INFECTION
     Route: 065

REACTIONS (2)
  - Drug ineffective [Fatal]
  - Death [Fatal]
